FAERS Safety Report 14922858 (Version 1)
Quarter: 2018Q2

REPORT INFORMATION
  Report Type: Spontaneous
  Country: US (occurrence: US)
  Receive Date: 20180503
  Receipt Date: 20180503
  Transmission Date: 20180711
  Serious: Yes (Hospitalization)
  Sender: FDA-Public Use
  Company Number: None

PATIENT
  Age: 61 Year
  Sex: Male
  Weight: 122 kg

DRUGS (4)
  1. CAMPTOSAR [Suspect]
     Active Substance: IRINOTECAN HYDROCHLORIDE
     Dates: end: 20180410
  2. 5-FLUOROURACIL (5-FU) [Suspect]
     Active Substance: FLUOROURACIL
     Dates: end: 20180410
  3. LEUCOVORIN CALCIUM. [Suspect]
     Active Substance: LEUCOVORIN CALCIUM
     Dates: end: 20180410
  4. ELOXATIN [Suspect]
     Active Substance: OXALIPLATIN
     Dates: end: 20180410

REACTIONS (10)
  - Neutropenia [None]
  - Hypocalcaemia [None]
  - Anaemia [None]
  - Abdominal distension [None]
  - Hypokalaemia [None]
  - Hypomagnesaemia [None]
  - Thrombocytopenia [None]
  - Hypoalbuminaemia [None]
  - Ascites [None]
  - Lung disorder [None]

NARRATIVE: CASE EVENT DATE: 20180430
